FAERS Safety Report 18930989 (Version 1)
Quarter: 2021Q1

REPORT INFORMATION
  Report Type: Spontaneous
  Country: DE (occurrence: DE)
  Receive Date: 20210224
  Receipt Date: 20210224
  Transmission Date: 20210420
  Serious: Yes (Other)
  Sender: FDA-Public Use
  Company Number: DE-ESPERIONTHERAPEUTICS-2021DEU00326

PATIENT
  Age: 69 Year
  Sex: Female

DRUGS (4)
  1. NILEMDO [Suspect]
     Active Substance: BEMPEDOIC ACID
     Indication: HYPERCHOLESTEROLAEMIA
     Dosage: 180 MG, QD
     Route: 048
     Dates: start: 202011, end: 20210113
  2. ATORVASTATIN [Concomitant]
     Active Substance: ATORVASTATIN
     Indication: HYPERCHOLESTEROLAEMIA
     Dosage: 20 MG
     Route: 048
     Dates: start: 2019
  3. THYRONAJOD [Concomitant]
     Active Substance: LEVOTHYROXINE SODIUM\POTASSIUM IODIDE
     Indication: HYPOTHYROIDISM
     Dosage: 50 MG
     Route: 065
     Dates: start: 2013
  4. EZETIMIBE. [Concomitant]
     Active Substance: EZETIMIBE
     Indication: HYPERCHOLESTEROLAEMIA
     Dosage: 10 MG
     Route: 065
     Dates: start: 2019

REACTIONS (2)
  - Drug ineffective [Recovered/Resolved]
  - Bradycardia [Recovering/Resolving]

NARRATIVE: CASE EVENT DATE: 202011
